FAERS Safety Report 11726442 (Version 1)
Quarter: 2015Q4

REPORT INFORMATION
  Report Type: Spontaneous
  Country: US (occurrence: US)
  Receive Date: 20151110
  Receipt Date: 20151110
  Transmission Date: 20160304
  Serious: No
  Sender: FDA-Public Use
  Company Number: US-ELI_LILLY_AND_COMPANY-US201111003283

PATIENT
  Sex: Female

DRUGS (2)
  1. FORTEO [Suspect]
     Active Substance: TERIPARATIDE
     Indication: OSTEOPOROSIS
     Dosage: UNK, QD
     Dates: start: 201006
  2. ANTIBIOTICS [Concomitant]
     Active Substance: UNSPECIFIED INGREDIENT
     Indication: INFECTION

REACTIONS (3)
  - Dysuria [Unknown]
  - Pollakiuria [Unknown]
  - Cystitis [Recovering/Resolving]
